FAERS Safety Report 9300165 (Version 5)
Quarter: 2014Q2

REPORT INFORMATION
  Report Type: Report from Study
  Country: DE (occurrence: DE)
  Receive Date: 20130521
  Receipt Date: 20140610
  Transmission Date: 20141212
  Serious: Yes (Disabling, Other)
  Sender: FDA-Public Use
  Company Number: PHHY2013DE048010

PATIENT
  Age: 46 Year
  Sex: Female
  Weight: 57 kg

DRUGS (3)
  1. ILARIS [Suspect]
     Indication: CRYOPYRIN ASSOCIATED PERIODIC SYNDROME
     Dates: start: 20100914, end: 20130207
  2. ILARIS [Suspect]
     Indication: MUCKLE-WELLS SYNDROME
  3. TAXOTERE [Concomitant]
     Dates: start: 20130612

REACTIONS (3)
  - Adenocarcinoma [Not Recovered/Not Resolved]
  - Breast cancer [Unknown]
  - Laryngitis [Recovered/Resolved]
